FAERS Safety Report 19736072 (Version 4)
Quarter: 2022Q2

REPORT INFORMATION
  Report Type: Report from Study
  Country: EG (occurrence: EG)
  Receive Date: 20210823
  Receipt Date: 20220425
  Transmission Date: 20220721
  Serious: Yes (Other)
  Sender: FDA-Public Use
  Company Number: NVSC2021EG177077

PATIENT
  Age: 43 Year
  Sex: Female

DRUGS (5)
  1. GILENYA [Suspect]
     Active Substance: FINGOLIMOD HYDROCHLORIDE
     Indication: Multiple sclerosis
     Dosage: 0.5 MG, QD
     Route: 048
     Dates: start: 202007, end: 20210724
  2. URSODIOL [Concomitant]
     Active Substance: URSODIOL
     Indication: Product used for unknown indication
     Dosage: UNK, Q12H
     Route: 065
  3. URSODIOL [Concomitant]
     Active Substance: URSODIOL
     Dosage: UNK
     Route: 065
  4. GAPTIN [Concomitant]
     Indication: Product used for unknown indication
     Dosage: UNK, Q12H
     Route: 065
  5. ZINC [Concomitant]
     Active Substance: ZINC
     Indication: Product used for unknown indication
     Dosage: 1 DF, QD
     Route: 065

REACTIONS (10)
  - Epiretinal membrane [Unknown]
  - Herpes zoster [Recovering/Resolving]
  - Skin burning sensation [Not Recovered/Not Resolved]
  - Blister [Not Recovered/Not Resolved]
  - Rash [Recovering/Resolving]
  - Haemoglobin increased [Unknown]
  - Full blood count abnormal [Unknown]
  - Peripheral swelling [Unknown]
  - Hepatic enzyme increased [Not Recovered/Not Resolved]
  - Breast swelling [Recovering/Resolving]

NARRATIVE: CASE EVENT DATE: 20210324
